FAERS Safety Report 25223570 (Version 1)
Quarter: 2025Q2

REPORT INFORMATION
  Report Type: Report from Study
  Country: JP (occurrence: JP)
  Receive Date: 20250422
  Receipt Date: 20250422
  Transmission Date: 20250716
  Serious: Yes (Death, Other)
  Sender: ROCHE
  Company Number: JP-ROCHE-10000260710

PATIENT

DRUGS (5)
  1. ATEZOLIZUMAB [Suspect]
     Active Substance: ATEZOLIZUMAB
     Indication: Small cell lung cancer extensive stage
     Route: 065
  2. CARBOPLATIN [Suspect]
     Active Substance: CARBOPLATIN
     Indication: Small cell lung cancer extensive stage
     Route: 065
  3. ETOPOSIDE [Suspect]
     Active Substance: ETOPOSIDE
     Indication: Small cell lung cancer extensive stage
     Route: 065
  4. DURVALUMAB [Suspect]
     Active Substance: DURVALUMAB
     Indication: Small cell lung cancer extensive stage
     Route: 065
  5. CISPLATIN [Suspect]
     Active Substance: CISPLATIN
     Indication: Small cell lung cancer extensive stage
     Route: 065

REACTIONS (20)
  - Pneumonitis [Fatal]
  - Hyperglycaemia [Fatal]
  - Tumour lysis syndrome [Fatal]
  - Febrile neutropenia [Unknown]
  - Infusion related reaction [Unknown]
  - Stevens-Johnson syndrome [Unknown]
  - Depression [Unknown]
  - Fatigue [Unknown]
  - Decreased appetite [Unknown]
  - Adrenal insufficiency [Unknown]
  - Aspartate aminotransferase increased [Unknown]
  - Cardiac failure [Unknown]
  - Rash maculo-papular [Unknown]
  - Blood creatinine increased [Unknown]
  - Seizure [Unknown]
  - Hepatic failure [Unknown]
  - Peripheral sensory neuropathy [Unknown]
  - Dermatitis bullous [Unknown]
  - Hypothyroidism [Unknown]
  - Arthritis [Unknown]
